FAERS Safety Report 14161316 (Version 2)
Quarter: 2017Q4

REPORT INFORMATION
  Report Type: Report from Study
  Country: DK (occurrence: DK)
  Receive Date: 20171106
  Receipt Date: 20171222
  Transmission Date: 20180321
  Serious: Yes (Death, Other)
  Sender: FDA-Public Use
  Company Number: DK-ACTELION-A-CH2017-150692

PATIENT
  Age: 65 Year
  Sex: Female
  Weight: 71 kg

DRUGS (16)
  1. TRACLEER [Suspect]
     Active Substance: BOSENTAN
     Dosage: UNK
     Route: 048
     Dates: start: 20060227
  2. SILDENAFIL. [Concomitant]
     Active Substance: SILDENAFIL
     Dosage: 50 MG, QID
  3. PREDNISOLON [Concomitant]
     Active Substance: PREDNISOLONE
     Dosage: 5 MG, QD
  4. ORENCIA [Concomitant]
     Active Substance: ABATACEPT
     Dosage: 125 MG, Q1WEEK
  5. KODEIN [Concomitant]
     Active Substance: CODEINE PHOSPHATE
     Dosage: 25 MG, TID
  6. TRACLEER [Suspect]
     Active Substance: BOSENTAN
     Indication: SCLERODERMA ASSOCIATED DIGITAL ULCER
     Dosage: 125 MG, BID
     Route: 048
     Dates: end: 20170221
  7. TRACLEER [Suspect]
     Active Substance: BOSENTAN
     Dosage: 62.5 MG, BID
     Route: 048
     Dates: start: 20150921
  8. GASTRO-TIMELETS [Concomitant]
     Dosage: 30 MG, PRN
  9. ACETYLSALICYLIC ACID [Concomitant]
     Active Substance: ASPIRIN
     Dosage: 75 MG, UNK
  10. OMEPRAZOLE. [Concomitant]
     Active Substance: OMEPRAZOLE
     Dosage: 40 MG, BID
  11. ACTIVELLE [Concomitant]
     Active Substance: ESTRADIOL\NORETHINDRONE ACETATE
     Dosage: 1 DF, QD
  12. MALFIN [Concomitant]
     Active Substance: MORPHINE SULFATE
     Dosage: 30 MG, BID
  13. ALPRAZOLAM. [Concomitant]
     Active Substance: ALPRAZOLAM
     Dosage: 1 MG, BID
  14. ALENDRONAT [Concomitant]
     Active Substance: ALENDRONATE SODIUM
     Dosage: 70 MG, Q1WEEK
  15. PANODIL [Concomitant]
     Active Substance: ACETAMINOPHEN
     Dosage: 1330 MG, TID
  16. CITALOPRAM [Concomitant]
     Active Substance: CITALOPRAM HYDROBROMIDE
     Dosage: 20 MG, QD

REACTIONS (9)
  - Hyperbilirubinaemia [Unknown]
  - Blood bilirubin increased [Unknown]
  - Hepatic cirrhosis [Fatal]
  - Hepatic fibrosis [Unknown]
  - Bilirubin excretion disorder [Unknown]
  - Alanine aminotransferase increased [Unknown]
  - Blood alkaline phosphatase increased [Unknown]
  - Stent placement [Unknown]
  - Cholestasis [Unknown]

NARRATIVE: CASE EVENT DATE: 2017
